FAERS Safety Report 12209901 (Version 2)
Quarter: 2016Q2

REPORT INFORMATION
  Report Type: Report from Study
  Country: US (occurrence: US)
  Receive Date: 20160325
  Receipt Date: 20160531
  Transmission Date: 20160815
  Serious: No
  Sender: FDA-Public Use
  Company Number: US-AMGEN-USASL2016034786

PATIENT
  Age: 60 Year
  Sex: Male

DRUGS (1)
  1. ENBREL [Suspect]
     Active Substance: ETANERCEPT
     Indication: PSORIASIS
     Dosage: 50 MG, QWK
     Route: 065
     Dates: start: 20150206

REACTIONS (4)
  - Temperature intolerance [Not Recovered/Not Resolved]
  - Rash [Not Recovered/Not Resolved]
  - Skin exfoliation [Not Recovered/Not Resolved]
  - No therapeutic response [Not Recovered/Not Resolved]

NARRATIVE: CASE EVENT DATE: 20150206
